FAERS Safety Report 4480416-8 (Version None)
Quarter: 2004Q4

REPORT INFORMATION
  Report Type: 
  Country: None (occurrence: None)
  Receive Date: 20041018
  Receipt Date: 20040921
  Transmission Date: 20050328
  Serious: Yes (Hospitalization)
  Sender: FDA-Public Use
  Company Number: 2004073826

PATIENT
  Age: 23 Month
  Sex: Male
  Weight: 14.5 kg

DRUGS (1)
  1. DIPHENHYDRAMINE HCL [Suspect]
     Indication: ACCIDENTAL OVERDOSE
     Dosage: ORAL
     Route: 048

REACTIONS (11)
  - ACCIDENTAL EXPOSURE [None]
  - AGITATION [None]
  - DRY SKIN [None]
  - ERYTHEMA [None]
  - FEELING HOT [None]
  - HEART RATE INCREASED [None]
  - OVERDOSE [None]
  - PCO2 DECREASED [None]
  - PUPIL FIXED [None]
  - RASH ERYTHEMATOUS [None]
  - RHABDOMYOLYSIS [None]
